FAERS Safety Report 8346902-5 (Version None)
Quarter: 2012Q2

REPORT INFORMATION
  Report Type: 
  Country: None (occurrence: None)
  Receive Date: 20120509
  Receipt Date: 20120430
  Transmission Date: 20120825
  Serious: Yes (Other)
  Sender: FDA-Public Use
  Company Number: CA-JNJFOC-20120501066

PATIENT
  Sex: Female
  Weight: 78.3 kg

DRUGS (6)
  1. AMLODIPINE [Concomitant]
     Route: 065
  2. REMICADE [Suspect]
     Indication: CROHN'S DISEASE
     Route: 042
  3. AZATHIOPRINE [Concomitant]
     Route: 048
  4. FOLIC ACID [Concomitant]
     Route: 065
  5. OMEPRAZOLE [Concomitant]
     Route: 065
  6. AMITRIPTYLINE HCL [Concomitant]
     Route: 065

REACTIONS (2)
  - NAUSEA [None]
  - DIARRHOEA HAEMORRHAGIC [None]
